FAERS Safety Report 6593313-9 (Version None)
Quarter: 2010Q1

REPORT INFORMATION
  Report Type: 
  Country: None (occurrence: None)
  Receive Date: 20100222
  Receipt Date: 20090120
  Transmission Date: 20100710
  Serious: No
  Sender: FDA-Public Use
  Company Number: US-BRISTOL-MYERS SQUIBB COMPANY-14477376

PATIENT
  Age: 57 Year
  Sex: Female
  Weight: 110 kg

DRUGS (6)
  1. ORENCIA [Suspect]
     Indication: DERMATITIS
     Dosage: INFUSION STOPPED AND RESTARTED AT A LOWER RATE
  2. MERCAPTOPURINE [Concomitant]
  3. PREDNISONE [Concomitant]
  4. HYDROCHLOROTHIAZIDE [Concomitant]
  5. CALTRATE [Concomitant]
  6. FISH OIL [Concomitant]

REACTIONS (4)
  - BLOOD PRESSURE INCREASED [None]
  - CHEST DISCOMFORT [None]
  - DYSPNOEA [None]
  - FLUSHING [None]
